FAERS Safety Report 5786549-8 (Version None)
Quarter: 2008Q2

REPORT INFORMATION
  Report Type: 
  Country: None (occurrence: None)
  Receive Date: 20080624
  Receipt Date: 20080617
  Transmission Date: 20081010
  Serious: Yes (Hospitalization)
  Sender: FDA-Public Use
  Company Number: AU-BOEHRINGER INGELHEIM GMBH, GERMANY-2008-BP-09388AU

PATIENT
  Sex: Female

DRUGS (8)
  1. ASASANTIN SR (CAPSULE, LONG ACTING) [Suspect]
     Route: 048
  2. LUCENTIS [Suspect]
     Dates: start: 20050314, end: 20060703
  3. NEXIUM [Suspect]
  4. NORVASC [Suspect]
  5. CALTRATE [Concomitant]
  6. MUCOMYST [Concomitant]
  7. PICOLAX [Concomitant]
  8. TRANSDERM-NITRO [Concomitant]

REACTIONS (2)
  - CONSTIPATION [None]
  - LIVER FUNCTION TEST ABNORMAL [None]
